FAERS Safety Report 10508618 (Version 1)
Quarter: 2014Q3

REPORT INFORMATION
  Report Type: Spontaneous
  Country: US (occurrence: None)
  Receive Date: 20140915
  Receipt Date: 20140915
  Transmission Date: 20150326
  Serious: Yes (Other)
  Sender: FDA-Public Use
  Company Number: 2013-US-002835

PATIENT
  Age: 35 Year
  Sex: Male
  Weight: 102 kg

DRUGS (3)
  1. L-THYROXINE ( LEVOTHYROXINE SODIUM) [Concomitant]
  2. XYREM [Suspect]
     Active Substance: SODIUM OXYBATE
     Indication: HYPERSOMNIA
     Route: 048
     Dates: start: 201209, end: 2012
  3. INSULIN ( INSULIN PORCINE) [Concomitant]

REACTIONS (1)
  - Sleep apnoea syndrome [None]
